FAERS Safety Report 9255096 (Version 1)
Quarter: 2013Q2

REPORT INFORMATION
  Report Type: Spontaneous
  Country: US (occurrence: None)
  Receive Date: 20130423
  Receipt Date: 20130423
  Transmission Date: 20140414
  Serious: No
  Sender: FDA-Public Use
  Company Number: None

PATIENT
  Sex: Female

DRUGS (2)
  1. LEXAPRO 20MG - GENERIC [Suspect]
     Indication: MAJOR DEPRESSION
     Dosage: 1 DOSE PO DAILY
     Route: 048
     Dates: start: 201203
  2. LEXAPRO 20MG - GENERIC [Suspect]
     Indication: SCHIZOAFFECTIVE DISORDER
     Dosage: 1 DOSE PO DAILY
     Route: 048
     Dates: start: 201203

REACTIONS (1)
  - Product substitution issue [None]
